FAERS Safety Report 20010115 (Version 1)
Quarter: 2021Q4

REPORT INFORMATION
  Report Type: Spontaneous
  Country: US (occurrence: US)
  Receive Date: 20211028
  Receipt Date: 20211028
  Transmission Date: 20220303
  Serious: No
  Sender: FDA-Public Use
  Company Number: US-SA-SAC20211022000733

PATIENT
  Sex: Female

DRUGS (1)
  1. FABRAZYME [Suspect]
     Active Substance: AGALSIDASE BETA
     Indication: Fabry^s disease
     Dosage: DOSE: 70 MG DOSE: 10 MG , QOW
     Route: 042
     Dates: start: 20200409

REACTIONS (2)
  - Sacroiliac joint dysfunction [Unknown]
  - Pruritus [Unknown]
